FAERS Safety Report 19591001 (Version 1)
Quarter: 2021Q3

REPORT INFORMATION
  Report Type: Other
  Country: DE (occurrence: DE)
  Receive Date: 20210721
  Receipt Date: 20210721
  Transmission Date: 20211014
  Serious: Yes (Other)
  Sender: FDA-Public Use
  Company Number: DE-GLENMARK PHARMACEUTICALS-2021GMK066720

PATIENT

DRUGS (9)
  1. NOVALGIN (METAMIZOLE SODIUM) [Concomitant]
     Active Substance: METAMIZOLE SODIUM
     Indication: PRODUCT USED FOR UNKNOWN INDICATION
     Dosage: 4 GRAM, OD
     Route: 065
     Dates: start: 20200619, end: 20200622
  2. QUETIAPINE. [Interacting]
     Active Substance: QUETIAPINE
     Indication: PRODUCT USED FOR UNKNOWN INDICATION
     Dosage: 100 MILLIGRAM, OD
     Route: 065
     Dates: start: 20200622, end: 20200624
  3. QUETIAPINE. [Interacting]
     Active Substance: QUETIAPINE
     Dosage: 200 MILLIGRAM, OD
     Route: 065
     Dates: start: 20200625, end: 20200628
  4. QUETIAPINE. [Interacting]
     Active Substance: QUETIAPINE
     Dosage: 300 MILLIGRAM, OD (AB HIER AUFTRETEN DER UAW)
     Route: 065
     Dates: start: 20200629, end: 20200917
  5. ATOMOXETINE. [Interacting]
     Active Substance: ATOMOXETINE HYDROCHLORIDE
     Dosage: 60 MILLIGRAM, OD
     Route: 065
     Dates: start: 20200624, end: 20200624
  6. ATOMOXETINE. [Interacting]
     Active Substance: ATOMOXETINE HYDROCHLORIDE
     Dosage: 65 MILLIGRAM, OD (REPORTED AS:AB HIER AUFTRETEN DER UAW)
     Route: 065
     Dates: start: 20200625, end: 20200910
  7. ATOMOXETINE. [Suspect]
     Active Substance: ATOMOXETINE HYDROCHLORIDE
     Indication: PRODUCT USED FOR UNKNOWN INDICATION
     Dosage: 40 MILLIGRAM, OD
     Route: 065
     Dates: start: 20200619, end: 20200623
  8. THIAMIN [THIAMINE] [Concomitant]
     Active Substance: THIAMINE
     Indication: PRODUCT USED FOR UNKNOWN INDICATION
     Dosage: 100 MILLIGRAM, OD
     Route: 065
     Dates: start: 20200619, end: 20200702
  9. QUETIAPINE. [Interacting]
     Active Substance: QUETIAPINE
     Dosage: 400 MILLIGRAM, OD (REPORTED AS: B.A.W.)
     Route: 065
     Dates: start: 20200918

REACTIONS (9)
  - Pollakiuria [Recovered/Resolved]
  - Irritability [Recovered/Resolved]
  - Ejaculation disorder [Recovering/Resolving]
  - Urinary retention [Unknown]
  - Pruritus [Recovered/Resolved]
  - Pustule [Recovered/Resolved]
  - Dysuria [Recovered/Resolved]
  - Dermatitis allergic [Recovered/Resolved]
  - Erectile dysfunction [Recovering/Resolving]

NARRATIVE: CASE EVENT DATE: 20200620
